FAERS Safety Report 13182784 (Version 1)
Quarter: 2017Q1

REPORT INFORMATION
  Report Type: Spontaneous
  Country: TR (occurrence: TR)
  Receive Date: 20170203
  Receipt Date: 20170203
  Transmission Date: 20170428
  Serious: Yes (Other)
  Sender: FDA-Public Use
  Company Number: PHHY2017TR012279

PATIENT
  Age: 34 Year
  Sex: Female

DRUGS (5)
  1. TALC [Concomitant]
     Active Substance: TALC
     Indication: DECUBITUS ULCER
     Route: 061
  2. CIPROFLOXACIN. [Suspect]
     Active Substance: CIPROFLOXACIN
     Indication: DECUBITUS ULCER
     Route: 065
  3. AMOXICILLIN+CLAVULANATE [Suspect]
     Active Substance: AMOXICILLIN\CLAVULANATE POTASSIUM
     Indication: DECUBITUS ULCER
     Route: 065
  4. DAKIN [Concomitant]
     Indication: DECUBITUS ULCER
     Dosage: UNK UNK, QD
     Route: 061
  5. ZINC OXIDE. [Concomitant]
     Active Substance: ZINC OXIDE
     Indication: DECUBITUS ULCER
     Route: 061

REACTIONS (2)
  - Blood creatinine increased [Recovered/Resolved]
  - Blood urea increased [Recovered/Resolved]
